FAERS Safety Report 8477578-4 (Version None)
Quarter: 2012Q2

REPORT INFORMATION
  Report Type: 
  Country: None (occurrence: None)
  Receive Date: 20120629
  Receipt Date: 20120625
  Transmission Date: 20120825
  Serious: Yes (Other)
  Sender: FDA-Public Use
  Company Number: US-PFIZER INC-2012152517

PATIENT
  Sex: Female

DRUGS (1)
  1. LYRICA [Suspect]
     Dosage: UNK

REACTIONS (5)
  - PANIC ATTACK [None]
  - BLADDER CANCER [None]
  - NEOPLASM MALIGNANT [None]
  - FIBROMYALGIA [None]
  - NEUROPATHY PERIPHERAL [None]
